FAERS Safety Report 4990785-8 (Version None)
Quarter: 2006Q2

REPORT INFORMATION
  Report Type: 
  Country: None (occurrence: None)
  Receive Date: 20060503
  Receipt Date: 20060316
  Transmission Date: 20061013
  Serious: Yes (Hospitalization)
  Sender: FDA-Public Use
  Company Number: AU-BOEHRINGER INGELHEIM PHARMACEUTICALS, INC.-2006-BP-03014AU

PATIENT
  Sex: Female
  Weight: 83 kg

DRUGS (3)
  1. MOBIC [Suspect]
     Indication: OSTEOARTHRITIS
     Route: 048
  2. ARIMIDEX [Concomitant]
     Indication: BREAST CANCER
     Route: 048
  3. ACETAMINOPHEN [Concomitant]
     Indication: RHEUMATOID ARTHRITIS
     Route: 048

REACTIONS (4)
  - ARRHYTHMIA [None]
  - CHEST DISCOMFORT [None]
  - HYPERTENSION [None]
  - TACHYCARDIA [None]
